FAERS Safety Report 12674392 (Version 1)
Quarter: 2016Q3

REPORT INFORMATION
  Report Type: Spontaneous
  Country: US (occurrence: US)
  Receive Date: 20160822
  Receipt Date: 20160822
  Transmission Date: 20161109
  Serious: No
  Sender: FDA-Public Use
  Company Number: US-BEH-2016057683

PATIENT
  Sex: Female

DRUGS (23)
  1. CLARITIN [Concomitant]
     Active Substance: LORATADINE
  2. TYLENOL EXTRA STRENGTH [Concomitant]
     Active Substance: ACETAMINOPHEN
  3. ALKA- SELTZER [Concomitant]
  4. DIPHENHYDRAMINE. [Concomitant]
     Active Substance: DIPHENHYDRAMINE
  5. HYDROXYZINE [Concomitant]
     Active Substance: HYDROXYZINE\HYDROXYZINE HYDROCHLORIDE
  6. PAXIL [Concomitant]
     Active Substance: PAROXETINE HYDROCHLORIDE
  7. PULMICORT TURBUHALER [Concomitant]
     Active Substance: BUDESONIDE
  8. ZEMAIRA [Suspect]
     Active Substance: .ALPHA.1-PROTEINASE INHIBITOR HUMAN
     Indication: ALPHA-1 ANTI-TRYPSIN DEFICIENCY
     Dosage: 1005 MG/VL
     Route: 042
  9. MAGNESIUM [Concomitant]
     Active Substance: MAGNESIUM
  10. LIDOCAINE/PRILOCAINE [Concomitant]
     Active Substance: LIDOCAINE\PRILOCAINE
  11. SODIUM CHLORIDE. [Concomitant]
     Active Substance: SODIUM CHLORIDE
  12. PROAIR HFA [Concomitant]
     Active Substance: ALBUTEROL SULFATE
  13. FISH OIL [Concomitant]
     Active Substance: FISH OIL
  14. TRIAMCINOLONE ACETONIDE. [Concomitant]
     Active Substance: TRIAMCINOLONE ACETONIDE
  15. ALBUTEROL. [Concomitant]
     Active Substance: ALBUTEROL
  16. MUCINEX [Concomitant]
     Active Substance: GUAIFENESIN
  17. OXYGEN. [Concomitant]
     Active Substance: OXYGEN
  18. HEPARIN [Concomitant]
     Active Substance: HEPARIN SODIUM
  19. PRILOSEC [Concomitant]
     Active Substance: OMEPRAZOLE MAGNESIUM
  20. PREDNISONE. [Concomitant]
     Active Substance: PREDNISONE
  21. POTASSIUM GLUCONATE [Concomitant]
     Active Substance: POTASSIUM GLUCONATE
  22. EPIPEN [Concomitant]
     Active Substance: EPINEPHRINE
  23. CALTRATE WITH VITAMIN D [Concomitant]
     Active Substance: CALCIUM CARBONATE\CHOLECALCIFEROL

REACTIONS (1)
  - Anorectal infection [Unknown]
